FAERS Safety Report 10194983 (Version 2)
Quarter: 2014Q2

REPORT INFORMATION
  Report Type: Spontaneous
  Country: US (occurrence: US)
  Receive Date: 20140526
  Receipt Date: 20140626
  Transmission Date: 20141212
  Serious: Yes (Hospitalization, Disabling, Other)
  Sender: FDA-Public Use
  Company Number: US-PFIZER INC-2014143816

PATIENT
  Age: 50 Year
  Sex: Male
  Weight: 113 kg

DRUGS (5)
  1. CHANTIX [Suspect]
     Indication: SMOKING CESSATION THERAPY
     Dosage: UNK
  2. HYDROCODONE [Concomitant]
     Dosage: UNK
  3. TIZANIDINE [Concomitant]
     Dosage: UNK
  4. CLONAZEPAM [Concomitant]
     Dosage: UNK
  5. SERTRALINE [Concomitant]
     Dosage: UNK

REACTIONS (8)
  - Pneumothorax [Unknown]
  - Subcutaneous abscess [Unknown]
  - Brain abscess [Unknown]
  - Abscess neck [Unknown]
  - Abscess [Unknown]
  - Monoplegia [Unknown]
  - Scar [Unknown]
  - Malaise [Unknown]
